FAERS Safety Report 4381376-0 (Version None)
Quarter: 2004Q2

REPORT INFORMATION
  Report Type: 
  Country: None (occurrence: None)
  Receive Date: 20040617
  Receipt Date: 20040608
  Transmission Date: 20050107
  Serious: Yes (Life-Threatening, Hospitalization)
  Sender: FDA-Public Use
  Company Number: 2004GB01255

PATIENT
  Sex: Male

DRUGS (3)
  1. CRESTOR [Suspect]
     Dosage: 10 MG DAILY PO
     Route: 048
     Dates: end: 20040409
  2. CRESTOR [Suspect]
     Dosage: 80 MG DAILY PO
     Route: 048
     Dates: start: 20040409, end: 20040509
  3. PRAVASTATIN [Concomitant]

REACTIONS (4)
  - DIALYSIS [None]
  - MEDICATION ERROR [None]
  - RENAL FAILURE ACUTE [None]
  - RHABDOMYOLYSIS [None]
